FAERS Safety Report 6243546-6 (Version None)
Quarter: 2009Q2

REPORT INFORMATION
  Report Type: 
  Country: None (occurrence: None)
  Receive Date: 20090622
  Receipt Date: 20090609
  Transmission Date: 20091009
  Serious: Yes (Death)
  Sender: FDA-Public Use
  Company Number: 2008-03326

PATIENT
  Age: 72 Year
  Sex: Male

DRUGS (4)
  1. VELCADE [Suspect]
     Indication: AMYLOIDOSIS
     Dosage: 1.3 MG/M2, INTRAVENOUS
     Route: 042
     Dates: start: 20080708, end: 20080829
  2. DEXAMETHASONE [Concomitant]
  3. OMEPRAZOLE [Concomitant]
  4. PYRIDOXINE (PYRIDOXINE) [Concomitant]

REACTIONS (3)
  - ARRHYTHMIA [None]
  - CARDIAC AMYLOIDOSIS [None]
  - SUDDEN DEATH [None]
